FAERS Safety Report 6636320-X (Version None)
Quarter: 2010Q1

REPORT INFORMATION
  Report Type: 
  Country: None (occurrence: None)
  Receive Date: 20100316
  Receipt Date: 20100315
  Transmission Date: 20100710
  Serious: Yes (Other)
  Sender: FDA-Public Use
  Company Number: PE-ROCHE-628800

PATIENT
  Sex: Male
  Weight: 57 kg

DRUGS (4)
  1. BEVACIZUMAB [Suspect]
     Indication: GASTRIC CANCER
     Dosage: FORM: INFUSION, FREQUENCY: D1Q3W. THERAPY TEMPORARILY INTERRUPTED (LAST DOSE : 1 APRIL 2009)
     Route: 042
     Dates: start: 20081029, end: 20090422
  2. BEVACIZUMAB [Suspect]
     Dosage: FREQUENCY: D1Q3W, VIAL PERMANENTLY DISCONTINUED
     Route: 042
     Dates: end: 20090604
  3. CAPECITABINE [Suspect]
     Indication: GASTRIC CANCER
     Dosage: FREQUENCY: D1-14Q3W, ROUTE: BID PO, LAST DOSE PRIOR SAE: 15 APR 2009.
     Route: 048
     Dates: start: 20081029, end: 20090706
  4. CISPLATIN [Suspect]
     Indication: GASTRIC CANCER
     Dosage: FREQUENCY: D1Q3W, FORM: INFUSION, DRUG NAME: CISPLATIN 50 MG. DOSE PRIOR TO SAE: 18 FEB 2009.
     Route: 042
     Dates: start: 20081029

REACTIONS (1)
  - OSTEOMYELITIS CHRONIC [None]
